FAERS Safety Report 9070342 (Version 3)
Quarter: 2013Q4

REPORT INFORMATION
  Report Type: Spontaneous
  Country: US (occurrence: US)
  Receive Date: 20130215
  Receipt Date: 20131008
  Transmission Date: 20140711
  Serious: Yes (Other)
  Sender: FDA-Public Use
  Company Number: US-BAYER-2013-018315

PATIENT
  Age: 34 Year
  Sex: Female
  Weight: 88.44 kg

DRUGS (11)
  1. YAZ [Suspect]
     Indication: CONTRACEPTION
     Dosage: UNK
     Dates: start: 2003, end: 2010
  2. YAZ [Suspect]
     Indication: PREMENSTRUAL DYSPHORIC DISORDER
     Dosage: UNK
     Dates: start: 2006, end: 2010
  3. YAZ [Suspect]
     Indication: PREMENSTRUAL SYNDROME
  4. YASMIN [Suspect]
     Indication: CONTRACEPTION
     Dosage: UNK
     Dates: start: 2003, end: 2010
  5. YASMIN [Suspect]
     Indication: PREMENSTRUAL DYSPHORIC DISORDER
  6. YASMIN [Suspect]
     Indication: PREMENSTRUAL SYNDROME
  7. LOTRIAL [Concomitant]
  8. XANAX [Concomitant]
  9. ALPRAZOLAM [Concomitant]
     Dosage: 1 MG, UNK
  10. NAPROXEN [Concomitant]
     Dosage: 375 MG, UNK
  11. AMLODIPINE BESYLATE W/BENAZEPRIL [Concomitant]
     Dosage: 5-20

REACTIONS (9)
  - Deep vein thrombosis [None]
  - Injury [None]
  - Pain [None]
  - General physical health deterioration [None]
  - Thrombophlebitis superficial [None]
  - Abdominal pain [None]
  - Emotional distress [None]
  - Anxiety [None]
  - Pain [None]
